FAERS Safety Report 15526086 (Version 1)
Quarter: 2018Q4

REPORT INFORMATION
  Report Type: Spontaneous
  Country: DE (occurrence: DE)
  Receive Date: 20181018
  Receipt Date: 20181018
  Transmission Date: 20190205
  Serious: Yes (Other)
  Sender: FDA-Public Use
  Company Number: DE-ASTRAZENECA-2018SF32447

PATIENT
  Age: 19 Year
  Sex: Female

DRUGS (2)
  1. BUDIAIR [Suspect]
     Active Substance: BUDESONIDE
     Indication: HYPERSENSITIVITY
     Dosage: 1.0DF ONCE/SINGLE ADMINISTRATION
     Route: 055
  2. BUDIAIR [Suspect]
     Active Substance: BUDESONIDE
     Indication: OFF LABEL USE
     Dosage: 1.0DF ONCE/SINGLE ADMINISTRATION
     Route: 055

REACTIONS (3)
  - Off label use [Recovered/Resolved]
  - Condition aggravated [Recovered/Resolved]
  - Hypersensitivity [Recovered/Resolved]
